FAERS Safety Report 5002847-X (Version None)
Quarter: 2006Q2

REPORT INFORMATION
  Report Type: 
  Country: None (occurrence: None)
  Receive Date: 20060512
  Receipt Date: 20060427
  Transmission Date: 20061013
  Serious: Yes (Disabling, Other)
  Sender: FDA-Public Use
  Company Number: BR-2005-028008

PATIENT
  Age: 42 Year
  Sex: Female

DRUGS (1)
  1. MIRENA [Suspect]
     Indication: MENSTRUATION IRREGULAR
     Dosage: 20 UG/DAY, CONT, INTRA-UTERINE
     Route: 015
     Dates: start: 20051101, end: 20051201

REACTIONS (6)
  - ARTHRALGIA [None]
  - GENERALISED OEDEMA [None]
  - HEADACHE [None]
  - JOINT EFFUSION [None]
  - MYALGIA [None]
  - NAUSEA [None]
